FAERS Safety Report 16819383 (Version 1)
Quarter: 2019Q3

REPORT INFORMATION
  Report Type: Spontaneous
  Country: US (occurrence: US)
  Receive Date: 20190917
  Receipt Date: 20190917
  Transmission Date: 20191005
  Serious: No
  Sender: FDA-Public Use
  Company Number: US-TEVA-2019-US-1107415

PATIENT
  Sex: Female

DRUGS (1)
  1. SPRINTEC [Suspect]
     Active Substance: ETHINYL ESTRADIOL\NORGESTIMATE
     Dosage: DOSE STRENGTH: NORGESTIMATE 0.250 MG/ETHINYLESTRADIOL 0.035 MG
     Dates: start: 20190826

REACTIONS (1)
  - Maternal exposure during pregnancy [Unknown]
